FAERS Safety Report 19145491 (Version 1)
Quarter: 2021Q2

REPORT INFORMATION
  Report Type: Spontaneous
  Country: US (occurrence: US)
  Receive Date: 20210416
  Receipt Date: 20210416
  Transmission Date: 20210717
  Serious: No
  Sender: FDA-Public Use
  Company Number: None

PATIENT
  Age: 51 Year
  Sex: Female

DRUGS (6)
  1. IMDEVIMAB. [Suspect]
     Active Substance: IMDEVIMAB
     Indication: COVID-19
     Dosage: ?          OTHER FREQUENCY:ONE TIME;?
     Route: 041
     Dates: start: 20210412, end: 20210412
  2. ONDANSETRON. [Concomitant]
     Active Substance: ONDANSETRON
     Dates: start: 20210412, end: 20210413
  3. GABAPENTIN ORAL [Concomitant]
     Dates: start: 20210413, end: 20210413
  4. LOXAPINE ORAL [Concomitant]
     Dates: start: 20210413, end: 20210413
  5. CASIRIVIMAB. [Suspect]
     Active Substance: CASIRIVIMAB
     Indication: COVID-19
     Dosage: ?          OTHER FREQUENCY:ONE TIME;?
     Route: 041
     Dates: start: 20210412, end: 20210412
  6. 0.9% SODIUM CHLORIDE INFUSION [Concomitant]
     Dates: start: 20210412, end: 20210412

REACTIONS (1)
  - Extra dose administered [None]

NARRATIVE: CASE EVENT DATE: 20210412
